FAERS Safety Report 6046098-9 (Version None)
Quarter: 2009Q1

REPORT INFORMATION
  Report Type: 
  Country: None (occurrence: None)
  Receive Date: 20090121
  Receipt Date: 20090121
  Transmission Date: 20090719
  Serious: Yes (Hospitalization)
  Sender: FDA-Public Use
  Company Number: None

PATIENT
  Sex: Female

DRUGS (4)
  1. KALETRA [Suspect]
     Indication: GLIOBLASTOMA MULTIFORME
     Dosage: TWICE DAILY
  2. KEPPRA [Concomitant]
  3. DECADRON [Concomitant]
  4. OXYCODONE HCL [Concomitant]

REACTIONS (3)
  - ABASIA [None]
  - PARAPARESIS [None]
  - URINARY INCONTINENCE [None]
